FAERS Safety Report 8285933-0 (Version None)
Quarter: 2012Q2

REPORT INFORMATION
  Report Type: 
  Country: None (occurrence: None)
  Receive Date: 20120415
  Receipt Date: 20120402
  Transmission Date: 20120825
  Serious: Yes (Hospitalization)
  Sender: FDA-Public Use
  Company Number: US-MYLANLABS-2012S1007303

PATIENT
  Age: 61 Year
  Sex: Female

DRUGS (5)
  1. TRAZODONE HCL [Suspect]
     Dosage: 25 MG/DAY
     Route: 065
  2. FLUOXETINE [Interacting]
     Dosage: 40 MG/DAY
     Route: 065
  3. BISACODYL [Concomitant]
     Indication: CONSTIPATION
     Dosage: 10MG AS NEEDED
  4. CLOZAPINE [Interacting]
     Indication: SCHIZOPHRENIA, PARANOID TYPE
     Dosage: 500 MG/DAY
     Route: 065
  5. SODIUM DIOCTYL SULFOSUCCINATE [Concomitant]
     Dosage: 200 MG/DAY
     Route: 065

REACTIONS (4)
  - CONSTIPATION [None]
  - ILEUS PARALYTIC [None]
  - DRUG LEVEL ABOVE THERAPEUTIC [None]
  - DRUG INTERACTION [None]
